FAERS Safety Report 6824256-0 (Version None)
Quarter: 2010Q3

REPORT INFORMATION
  Report Type: 
  Country: None (occurrence: None)
  Receive Date: 20100708
  Receipt Date: 20061015
  Transmission Date: 20110219
  Serious: Yes (Other)
  Sender: FDA-Public Use
  Company Number: US-PFIZER INC-2006127394

PATIENT
  Age: 49 Year
  Sex: Female
  Weight: 58.97 kg

DRUGS (3)
  1. CHANTIX [Suspect]
     Indication: EX-TOBACCO USER
     Route: 048
     Dates: start: 20061001
  2. DRUG, UNSPECIFIED [Concomitant]
  3. OTHER ANTI-ASTHMATICS FOR SYSTEMIC USE [Concomitant]

REACTIONS (6)
  - ABNORMAL DREAMS [None]
  - AGITATION [None]
  - EMOTIONAL DISORDER [None]
  - IRRITABILITY [None]
  - MOOD SWINGS [None]
  - RESTLESSNESS [None]
